FAERS Safety Report 7497666-9 (Version None)
Quarter: 2011Q2

REPORT INFORMATION
  Report Type: 
  Country: None (occurrence: None)
  Receive Date: 20110523
  Receipt Date: 20110511
  Transmission Date: 20111010
  Serious: Yes (Hospitalization, Other)
  Sender: FDA-Public Use
  Company Number: US-AMGEN-USASP2011024537

PATIENT
  Age: 64 Year
  Sex: Female

DRUGS (2)
  1. ENBREL [Suspect]
     Indication: RHEUMATOID ARTHRITIS
     Dosage: 50 MG, QWK
     Dates: start: 20011101
  2. PLAQUENIL [Concomitant]
     Dosage: 2 MG, UNK
     Dates: start: 19960101

REACTIONS (14)
  - ASTHMA [None]
  - OSTEOPOROSIS [None]
  - DRUG INEFFECTIVE [None]
  - RIB FRACTURE [None]
  - OSTEOARTHRITIS [None]
  - ROAD TRAFFIC ACCIDENT [None]
  - LIMB INJURY [None]
  - SPINAL COMPRESSION FRACTURE [None]
  - LUNG INFECTION [None]
  - RHEUMATOID ARTHRITIS [None]
  - COLITIS ISCHAEMIC [None]
  - JOINT DISLOCATION [None]
  - WHEELCHAIR USER [None]
  - DIVERTICULITIS [None]
